FAERS Safety Report 4815094-9 (Version None)
Quarter: 2005Q4

REPORT INFORMATION
  Report Type: 
  Country: None (occurrence: None)
  Receive Date: 20051028
  Receipt Date: 20050808
  Transmission Date: 20060501
  Serious: Yes (Life-Threatening, Hospitalization, Disabling)
  Sender: FDA-Public Use
  Company Number: DE-ABBOTT-05P-062-0307923-00

PATIENT
  Sex: Male
  Weight: 58 kg

DRUGS (13)
  1. ZEMPLAR [Suspect]
     Indication: HYPERPARATHYROIDISM SECONDARY
     Route: 042
     Dates: start: 20050610
  2. PHOS-EX 950 MG [Concomitant]
     Indication: HYPERPARATHYROIDISM SECONDARY
     Route: 048
  3. OSTEOTRIOL 0.5 MICROGRAMS [Concomitant]
     Indication: HYPERPARATHYROIDISM SECONDARY
     Route: 048
  4. MIMPARA 30 MG [Concomitant]
     Indication: HYPERPARATHYROIDISM SECONDARY
     Route: 048
  5. FERRIC SODIUM GLUCONATE COMPLEX [Concomitant]
     Indication: DRUG USE FOR UNKNOWN INDICATION
     Dates: start: 20041105
  6. CYANOCOBALAMIN [Concomitant]
     Indication: DRUG USE FOR UNKNOWN INDICATION
     Dates: start: 20040908
  7. BETAXOLOL [Concomitant]
     Indication: DRUG USE FOR UNKNOWN INDICATION
     Dates: start: 20000928
  8. IRBESARTAN [Concomitant]
     Indication: DRUG USE FOR UNKNOWN INDICATION
     Dates: start: 20000928
  9. AMLODIPINE BESYLATE [Concomitant]
     Indication: DRUG USE FOR UNKNOWN INDICATION
     Dates: start: 20010530
  10. ZOCOR [Concomitant]
     Indication: DRUG USE FOR UNKNOWN INDICATION
     Dates: start: 20000928
  11. L-THYROX [Concomitant]
     Indication: DRUG USE FOR UNKNOWN INDICATION
     Dates: start: 20000928
  12. INDOMETHACIN [Concomitant]
     Indication: DRUG USE FOR UNKNOWN INDICATION
     Dates: start: 20000928
  13. ERYPO 400 IE [Concomitant]
     Indication: DRUG USE FOR UNKNOWN INDICATION
     Dosage: NOT REPORTED
     Dates: start: 20050710

REACTIONS (4)
  - AMPUTATION REVISION [None]
  - GANGRENE [None]
  - LEG AMPUTATION [None]
  - SEPSIS [None]
